FAERS Safety Report 5965471-8 (Version None)
Quarter: 2008Q4

REPORT INFORMATION
  Report Type: 
  Country: None (occurrence: None)
  Receive Date: 20081121
  Receipt Date: 20080825
  Transmission Date: 20090506
  Serious: Yes (Hospitalization)
  Sender: FDA-Public Use
  Company Number: 2008S1015437

PATIENT
  Age: 56 Year
  Sex: Female

DRUGS (5)
  1. FENOFIBRATE [Suspect]
     Indication: HYPERTRIGLYCERIDAEMIA
     Dosage: 200 MG, DAILY,
  2. PRAVASTATIN [Suspect]
     Indication: CORONARY ARTERY DISEASE
     Dosage: 20 MG, DAILY,
  3. ASPIRIN [Concomitant]
  4. BETA BLOCKING AGENTS (BETA BLOCKING AGENTS) [Concomitant]
  5. ACE INHIBITOR NOS (ACE INHIBITOR NOS) [Concomitant]

REACTIONS (4)
  - HAEMODIALYSIS [None]
  - METABOLIC ACIDOSIS [None]
  - RENAL FAILURE ACUTE [None]
  - RHABDOMYOLYSIS [None]
